FAERS Safety Report 9563744 (Version 2)
Quarter: 2013Q4

REPORT INFORMATION
  Report Type: Spontaneous
  Country: GB (occurrence: None)
  Receive Date: 20130926
  Receipt Date: 20131209
  Transmission Date: 20140711
  Serious: Yes (Death, Hospitalization, Other)
  Sender: FDA-Public Use
  Company Number: INT_00311_2013

PATIENT
  Age: 54 Year
  Sex: Female

DRUGS (16)
  1. MEROPENEM [Suspect]
     Indication: CELLULITIS
     Dosage: INTRAVENOUS (NOT OTHERWISE SPECIFIED))
     Route: 042
     Dates: start: 20130812, end: 20130820
  2. GENTAMICIN [Suspect]
     Indication: CELLULITIS
     Route: 042
     Dates: start: 20130802, end: 20130805
  3. VANCOMYCIN [Suspect]
     Indication: CELLULITIS
     Dosage: INTRAVENOUS DRIP)
     Route: 041
     Dates: start: 20130805, end: 20130811
  4. FRAGMIN [Concomitant]
  5. GLICLAZIDE [Concomitant]
  6. HUMULIN INSULIN [Concomitant]
  7. HUMULIN S [Concomitant]
  8. LEVOTHYROXINE SODIUM [Concomitant]
  9. METFORMIN [Concomitant]
  10. PARACETAMOL [Concomitant]
  11. CODEINE [Concomitant]
  12. FUROSEMIDE [Concomitant]
  13. RAMIPRIL [Concomitant]
  14. SIMVASTATIN [Concomitant]
  15. CALCIUM RESONIUM [Concomitant]
  16. DALACIN C [Concomitant]

REACTIONS (8)
  - Respiratory failure [None]
  - Respiratory acidosis [None]
  - Metabolic acidosis [None]
  - Renal failure acute [None]
  - Tubulointerstitial nephritis [None]
  - Drug hypersensitivity [None]
  - Sepsis [None]
  - No therapeutic response [None]
